FAERS Safety Report 7364837-1 (Version None)
Quarter: 2011Q1

REPORT INFORMATION
  Report Type: 
  Country: None (occurrence: None)
  Receive Date: 20110321
  Receipt Date: 20110315
  Transmission Date: 20110831
  Serious: Yes (Life-Threatening)
  Sender: FDA-Public Use
  Company Number: FR-ASTRAZENECA-2011SE15020

PATIENT
  Age: 17077 Day
  Sex: Female

DRUGS (3)
  1. DESFLURANE [Suspect]
     Indication: ANAESTHESIA
     Route: 055
     Dates: start: 20110204, end: 20110204
  2. SUFENTANYL RENAUDIN [Suspect]
     Indication: ANALGESIC THERAPY
     Route: 042
     Dates: start: 20110204, end: 20110204
  3. DIPRIVAN [Suspect]
     Indication: ANAESTHESIA
     Route: 042
     Dates: start: 20110204, end: 20110204

REACTIONS (3)
  - AIRWAY COMPLICATION OF ANAESTHESIA [None]
  - DELAYED RECOVERY FROM ANAESTHESIA [None]
  - RESPIRATORY DEPRESSION [None]
